FAERS Safety Report 9420856 (Version 1)
Quarter: 2013Q3

REPORT INFORMATION
  Report Type: Spontaneous
  Country: US (occurrence: US)
  Receive Date: 20130725
  Receipt Date: 20130725
  Transmission Date: 20140515
  Serious: No
  Sender: FDA-Public Use
  Company Number: US-ABBOTT-13P-163-1105771-00

PATIENT
  Age: 80 Year
  Sex: Female
  Weight: 72.64 kg

DRUGS (2)
  1. SYNTHROID [Suspect]
     Indication: THYROID DISORDER
     Route: 048
     Dates: start: 201304
  2. PROPRANOLOL [Concomitant]
     Indication: TACHYCARDIA

REACTIONS (7)
  - Myalgia [Unknown]
  - Arthralgia [Unknown]
  - Fatigue [Unknown]
  - Weight increased [Unknown]
  - Hyperhidrosis [Unknown]
  - Pyrexia [Unknown]
  - Headache [Unknown]
